FAERS Safety Report 13003787 (Version 32)
Quarter: 2023Q1

REPORT INFORMATION
  Report Type: Report from Study
  Country: CA (occurrence: CA)
  Receive Date: 20161206
  Receipt Date: 20230228
  Transmission Date: 20230417
  Serious: Yes (Hospitalization)
  Sender: FDA-Public Use
  Company Number: PHHY2016CA149013

PATIENT
  Age: 61 Year
  Sex: Male

DRUGS (13)
  1. SANDOSTATIN [Suspect]
     Active Substance: OCTREOTIDE ACETATE
     Indication: Metastatic carcinoid tumour
     Dosage: 100 UG, TID (FOR ONE WEEK)
     Route: 058
     Dates: start: 20161020, end: 20161020
  2. SANDOSTATIN [Suspect]
     Active Substance: OCTREOTIDE ACETATE
  3. SANDOSTATIN [Suspect]
     Active Substance: OCTREOTIDE ACETATE
  4. SANDOSTATIN LAR DEPOT [Suspect]
     Active Substance: OCTREOTIDE ACETATE
     Indication: Metastatic carcinoid tumour
     Dosage: 30 MG, QMO (EVERY 4 WEEKS)
     Route: 030
     Dates: start: 20161027
  5. SANDOSTATIN LAR DEPOT [Suspect]
     Active Substance: OCTREOTIDE ACETATE
     Dosage: 40 MG, QMO (Q28 DAYS) (4 WEEKS)
     Route: 030
     Dates: start: 20161027
  6. SANDOSTATIN LAR DEPOT [Suspect]
     Active Substance: OCTREOTIDE ACETATE
     Dosage: 40 MG, QMO (Q28 DAYS)
     Route: 030
     Dates: start: 20220705
  7. METOPROLOL [Suspect]
     Active Substance: METOPROLOL
     Indication: Product used for unknown indication
     Dosage: UNK, TID ( FOR 1 DAY)
     Route: 048
  8. JARDIANCE [Concomitant]
     Active Substance: EMPAGLIFLOZIN
     Indication: Diabetes mellitus
     Dosage: 10 MG, BID (DAY BEFORE THE INJECTION)
     Route: 048
     Dates: start: 20170802
  9. JARDIANCE [Concomitant]
     Active Substance: EMPAGLIFLOZIN
     Dosage: 10 MG, QD (30 DAYS)
     Route: 065
     Dates: start: 2019
  10. JARDIANCE [Concomitant]
     Active Substance: EMPAGLIFLOZIN
     Dosage: 25 MG, QD (STRENGTH: 25 MG)
     Route: 065
  11. INSULIN NOS [Concomitant]
     Active Substance: INSULIN NOS
     Indication: Product used for unknown indication
     Dosage: UNK
     Route: 065
     Dates: start: 20180222, end: 202103
  12. METFORMIN [Concomitant]
     Active Substance: METFORMIN HYDROCHLORIDE
     Indication: Diabetes mellitus
     Dosage: UNK
     Route: 065
     Dates: end: 20190509
  13. JANUMET [Concomitant]
     Active Substance: METFORMIN HYDROCHLORIDE\SITAGLIPTIN PHOSPHATE
     Indication: Diabetes mellitus
     Dosage: 10 MG, BID (1000-50MG)
     Route: 065
     Dates: start: 2019

REACTIONS (15)
  - Haemorrhage [Unknown]
  - Sepsis [Recovered/Resolved]
  - Abnormal faeces [Recovered/Resolved]
  - Pyrexia [Recovered/Resolved]
  - Malaise [Recovered/Resolved]
  - Vitamin D deficiency [Unknown]
  - Pyrexia [Recovered/Resolved]
  - Faeces hard [Unknown]
  - Anaemia [Unknown]
  - Blood glucose decreased [Not Recovered/Not Resolved]
  - Blood pressure systolic increased [Unknown]
  - Blood pressure increased [Unknown]
  - Dyspnoea [Unknown]
  - Hyperglycaemia [Unknown]
  - Injection site pain [Unknown]

NARRATIVE: CASE EVENT DATE: 20161001
